FAERS Safety Report 25325290 (Version 1)
Quarter: 2025Q2

REPORT INFORMATION
  Report Type: Spontaneous
  Country: US (occurrence: US)
  Receive Date: 20250516
  Receipt Date: 20250516
  Transmission Date: 20250716
  Serious: Yes (Hospitalization)
  Sender: MERCK SHARP & DOHME LLC
  Company Number: US-009507513-1805USA011392

PATIENT
  Sex: Female
  Weight: 87.075 kg

DRUGS (2)
  1. ZOSTAVAX [Suspect]
     Active Substance: VARICELLA-ZOSTER VIRUS STRAIN OKA/MERCK LIVE ANTIGEN
     Indication: Prophylaxis
     Route: 058
     Dates: start: 20121206
  2. ZOSTAVAX [Suspect]
     Active Substance: VARICELLA-ZOSTER VIRUS STRAIN OKA/MERCK LIVE ANTIGEN
     Indication: Prophylaxis
     Route: 058

REACTIONS (25)
  - Vaccination failure [Unknown]
  - Herpes zoster [Unknown]
  - Rosacea [Unknown]
  - Dermatitis contact [Unknown]
  - Paraesthesia [Unknown]
  - Seborrhoeic keratosis [Unknown]
  - Dermatitis atopic [Unknown]
  - Fatigue [Unknown]
  - Headache [Unknown]
  - Hypoaesthesia [Unknown]
  - Eyelid ptosis [Unknown]
  - Back pain [Unknown]
  - Oedema peripheral [Unknown]
  - Hyperlipidaemia [Unknown]
  - Vaccination site erythema [Unknown]
  - Vaccination site swelling [Unknown]
  - Injection site pruritus [Unknown]
  - Injection site pain [Unknown]
  - Injection site hypoaesthesia [Unknown]
  - Injection site hyperaesthesia [Unknown]
  - Neuralgia [Unknown]
  - Myalgia [Unknown]
  - Muscle strain [Unknown]
  - Ill-defined disorder [Not Recovered/Not Resolved]
  - Condition aggravated [Not Recovered/Not Resolved]

NARRATIVE: CASE EVENT DATE: 20120101
